FAERS Safety Report 4956644-1 (Version None)
Quarter: 2006Q1

REPORT INFORMATION
  Report Type: 
  Country: None (occurrence: None)
  Receive Date: 20060323
  Receipt Date: 20060314
  Transmission Date: 20060701
  Serious: Yes (Hospitalization)
  Sender: FDA-Public Use
  Company Number: 2006-BP-03069RO

PATIENT
  Age: 67 Year
  Sex: Male

DRUGS (3)
  1. PREDNISONE TAB [Suspect]
     Indication: RHEUMATOID ARTHRITIS
     Dosage: 40MG/D LATER INCR TO 90MG/D
     Dates: start: 20041201
  2. AZATHIOPRINE [Suspect]
     Indication: RHEUMATOID ARTHRITIS
     Dates: start: 20040901
  3. ADALIMUMAB (ADALIMUMAB) [Suspect]
     Indication: RHEUMATOID ARTHRITIS
     Dosage: 40 MG, SC, EVERY 2 WEEKS (, 1 IN 2 WK), SC
     Route: 058
     Dates: start: 20040901, end: 20041201

REACTIONS (15)
  - ATELECTASIS [None]
  - AUTOANTIBODY POSITIVE [None]
  - DRUG INEFFECTIVE [None]
  - DRUG INTOLERANCE [None]
  - HYPERTHYROIDISM [None]
  - LABORATORY TEST ABNORMAL [None]
  - LARYNGOSPASM [None]
  - OXYGEN SATURATION DECREASED [None]
  - PCO2 DECREASED [None]
  - PO2 DECREASED [None]
  - PULMONARY EMBOLISM [None]
  - PULMONARY FIBROSIS [None]
  - PYREXIA [None]
  - RALES [None]
  - RHEUMATOID FACTOR INCREASED [None]
